FAERS Safety Report 15448975 (Version 1)
Quarter: 2018Q3

REPORT INFORMATION
  Report Type: Spontaneous
  Country: US (occurrence: US)
  Receive Date: 20180925
  Receipt Date: 20180925
  Transmission Date: 20181010
  Serious: Yes (Death)
  Sender: FDA-Public Use
  Company Number: None

PATIENT
  Age: 69 Year
  Sex: Female
  Weight: 68.9 kg

DRUGS (1)
  1. ARIMIDEX [Suspect]
     Active Substance: ANASTROZOLE
     Dates: end: 20180828

REACTIONS (8)
  - Loss of consciousness [None]
  - Hypoxia [None]
  - Bradycardia [None]
  - Fluid retention [None]
  - Cardiac arrest [None]
  - Mean arterial pressure decreased [None]
  - Mean arterial pressure increased [None]
  - Syncope [None]

NARRATIVE: CASE EVENT DATE: 20180909
